FAERS Safety Report 10618072 (Version 1)
Quarter: 2014Q4

REPORT INFORMATION
  Report Type: Spontaneous
  Country: FR (occurrence: FR)
  Receive Date: 20141202
  Receipt Date: 20141202
  Transmission Date: 20150529
  Serious: Yes (Hospitalization)
  Sender: FDA-Public Use
  Company Number: FR-ORION CORPORATION ORION PHARMA-ENTC2014-0418

PATIENT
  Sex: Male

DRUGS (13)
  1. PAROXETINE [Suspect]
     Active Substance: PAROXETINE\PAROXETINE HYDROCHLORIDE
     Route: 048
  2. LAMALINE [Concomitant]
     Active Substance: ACETAMINOPHEN\CAFFEINE\OPIUM
     Route: 065
     Dates: start: 20140617
  3. TRAMADOL [Concomitant]
     Active Substance: TRAMADOL
     Route: 065
  4. REQUIP LP [Suspect]
     Active Substance: ROPINIROLE HYDROCHLORIDE
     Route: 048
     Dates: end: 20140528
  5. BIPROFENID [Concomitant]
     Active Substance: KETOPROFEN
     Route: 065
  6. REQUIP LP [Suspect]
     Active Substance: ROPINIROLE HYDROCHLORIDE
     Route: 065
     Dates: start: 20140528
  7. AZILECT [Suspect]
     Active Substance: RASAGILINE MESYLATE
     Route: 048
  8. LUMIRELAX [Concomitant]
     Active Substance: METHOCARBAMOL
     Route: 065
  9. VESICARE [Suspect]
     Active Substance: SOLIFENACIN SUCCINATE
     Dates: start: 20140617
  10. STALEVO [Suspect]
     Active Substance: CARBIDOPA\ENTACAPONE\LEVODOPA
     Route: 048
  11. MONURIL [Concomitant]
     Active Substance: FOSFOMYCIN SODIUM
     Route: 065
     Dates: start: 20140617
  12. THIOCOLCHICOSIDE [Concomitant]
     Active Substance: THIOCOLCHICOSIDE
     Route: 065
  13. APRANAX [Concomitant]
     Active Substance: NAPROXEN
     Route: 065

REACTIONS (4)
  - Confusional state [Recovered/Resolved]
  - Hallucination [Unknown]
  - Psychomotor hyperactivity [Unknown]
  - Circadian rhythm sleep disorder [Unknown]
